FAERS Safety Report 8821516 (Version 2)
Quarter: 2012Q4

REPORT INFORMATION
  Report Type: 
  Country: US (occurrence: US)
  Receive Date: 20121002
  Receipt Date: 20121121
  Transmission Date: 20130627
  Serious: Yes (Other)
  Sender: FDA-Public Use
  Company Number: US-PFIZER INC-2012239275

PATIENT
  Age: 70 Year
  Sex: Female
  Weight: 77.1 kg

DRUGS (6)
  1. XALATAN [Suspect]
     Indication: OPEN ANGLE GLAUCOMA
     Dosage: 1 Gtt, daily at night both eyes
     Route: 047
     Dates: start: 1998
  2. XALATAN [Suspect]
     Dosage: 1 Gtt, daily at night both eyes
     Route: 047
     Dates: start: 2012
  3. LATANOPROST [Suspect]
     Indication: OPEN ANGLE GLAUCOMA
     Dosage: 1 Gtt, daily at night, both eyes
     Route: 047
     Dates: start: 201209, end: 201209
  4. LUMIGAN [Suspect]
     Dosage: UNK
  5. TRAVATAN [Suspect]
     Dosage: UNK
  6. NEXIUM [Concomitant]
     Indication: GASTROESOPHAGEAL REFLUX DISEASE
     Dosage: 40 mg, daily

REACTIONS (13)
  - Mental impairment [Recovering/Resolving]
  - Product formulation issue [Unknown]
  - Abnormal behaviour [Not Recovered/Not Resolved]
  - Depression [Not Recovered/Not Resolved]
  - Anxiety [Recovering/Resolving]
  - Insomnia [Not Recovered/Not Resolved]
  - Arthralgia [Not Recovered/Not Resolved]
  - Influenza [Not Recovered/Not Resolved]
  - Pain in extremity [Not Recovered/Not Resolved]
  - Nausea [Not Recovered/Not Resolved]
  - Emotional disorder [Unknown]
  - Myalgia [Unknown]
  - Memory impairment [Unknown]
